FAERS Safety Report 10287694 (Version 4)
Quarter: 2014Q4

REPORT INFORMATION
  Report Type: Spontaneous
  Country: US (occurrence: None)
  Receive Date: 20140707
  Receipt Date: 20141203
  Transmission Date: 20150528
  Serious: Yes (Hospitalization, Other)
  Sender: FDA-Public Use
  Company Number: 2014VID00006

PATIENT
  Age: 14 Month
  Sex: Male

DRUGS (37)
  1. FLUCINOLONE ACETONIDE [Concomitant]
  2. ONDANSETRON [Concomitant]
     Active Substance: ONDANSETRON
  3. BACITRACIN. [Concomitant]
     Active Substance: BACITRACIN
  4. NYSTATIN. [Concomitant]
     Active Substance: NYSTATIN
  5. CLONIDINE. [Concomitant]
     Active Substance: CLONIDINE
  6. BACLOFEN. [Concomitant]
     Active Substance: BACLOFEN
  7. CLONAZEPAM. [Suspect]
     Active Substance: CLONAZEPAM
     Route: 048
  8. MUPIROCIN (BACTROBAN) [Concomitant]
  9. MULTIVITAMIN WITH IRON (POLY-VI-SOL WITH IRON) [Concomitant]
  10. SODIUM CHLORIDE NASAL SOLN [Concomitant]
  11. LOVENOX [Concomitant]
     Active Substance: ENOXAPARIN SODIUM
  12. SODIUM CHLORIDE (HYPER-SAL) [Concomitant]
  13. DIPHENHYDRAMINE [Concomitant]
     Active Substance: DIPHENHYDRAMINE
  14. LORATADINE (CLARATIN) [Concomitant]
  15. FLUCYTOSINE. [Suspect]
     Active Substance: FLUCYTOSINE
  16. VFEND [Concomitant]
     Active Substance: VORICONAZOLE
  17. CLONAZEPAM. [Concomitant]
     Active Substance: CLONAZEPAM
  18. AMLODIPINE BESILATE POWDER [Concomitant]
  19. LISINOPRIL. [Suspect]
     Active Substance: LISINOPRIL
  20. ACTIMMUNE [Suspect]
     Active Substance: INTERFERON GAMMA-1B
     Indication: CONGENITAL HYDROCEPHALUS
     Route: 058
     Dates: start: 201311, end: 201405
  21. LEVETIRACETAM (KEPPRA) [Concomitant]
  22. MAGNESIUM GLUCONATE [Concomitant]
     Active Substance: MAGNESIUM GLUCONATE
  23. AZITHROMYCIN [Concomitant]
     Active Substance: AZITHROMYCIN ANHYDROUS
  24. HYDROCORTISONE. [Concomitant]
     Active Substance: HYDROCORTISONE
  25. ONDANSETRON SOLN [Concomitant]
  26. DIAZEPAM RECTAL GEL [Concomitant]
  27. PHOSPHATES, SODIUM/POTASSIUM (PHOS-NAK) [Concomitant]
  28. OXCARBAZEPINE. [Concomitant]
     Active Substance: OXCARBAZEPINE
  29. POTASSIUM CHLORIDE. [Concomitant]
     Active Substance: POTASSIUM CHLORIDE
  30. SIMETHICONE [Concomitant]
     Active Substance: DIMETHICONE\SILICON DIOXIDE\SIMETHICONE
  31. LANSOPRAZOLE SUSP [Concomitant]
  32. VORICONAZOLE. [Concomitant]
     Active Substance: VORICONAZOLE
  33. SULFAMETHOXAZOLE/TRIMETHOPRIM [Concomitant]
     Active Substance: SULFAMETHOXAZOLE\TRIMETHOPRIM
  34. CHOLECALCIFEROL (VITAMIN D3) [Concomitant]
  35. MAGNESIUM GLUCONATE [Concomitant]
     Active Substance: MAGNESIUM GLUCONATE
  36. CEFPROZIL. [Concomitant]
     Active Substance: CEFPROZIL
  37. MAGNESIUM CITRATE SOLUTION [Concomitant]

REACTIONS (60)
  - Pneumonia [None]
  - Monocyte percentage increased [None]
  - White blood cell analysis abnormal [None]
  - Histiocytosis haematophagic [None]
  - Chronic granulomatous disease [None]
  - Hypotonia [None]
  - Rash papular [None]
  - Staphylococcal skin infection [None]
  - Device related infection [None]
  - Metabolic acidosis [None]
  - CSF shunt operation [None]
  - Anaemia [None]
  - Post inflammatory pigmentation change [None]
  - Pulmonary mass [None]
  - Pulmonary mycosis [None]
  - Clostridium difficile colitis [None]
  - Blood urea decreased [None]
  - Sleep apnoea syndrome [None]
  - Infection susceptibility increased [None]
  - Feeding disorder [None]
  - Nasopharyngitis [None]
  - Dermatitis diaper [None]
  - Dysphagia [None]
  - Systemic mycosis [None]
  - Hospitalisation [None]
  - Parainfluenzae virus infection [None]
  - Lung infiltration [None]
  - Nasal congestion [None]
  - Hypophagia [None]
  - Gamma-glutamyltransferase increased [None]
  - Osteopenia [None]
  - Gastroenteritis rotavirus [None]
  - Dermatitis [None]
  - Fungal infection [None]
  - Candida infection [None]
  - Mental status changes [None]
  - Oxygen consumption increased [None]
  - Heart rate increased [None]
  - Folliculitis [None]
  - Diarrhoea [None]
  - Hypernatraemia [None]
  - Carbon dioxide increased [None]
  - Prealbumin decreased [None]
  - Hypoxia [None]
  - Gastroenteritis [None]
  - Klebsiella infection [None]
  - Bone marrow failure [None]
  - Neutropenia [None]
  - Atelectasis [None]
  - Immunodeficiency [None]
  - Ingrowing nail [None]
  - Miliaria [None]
  - Hepatosplenomegaly [None]
  - Fungal oesophagitis [None]
  - Off label use [None]
  - Eosinophil percentage increased [None]
  - Neutrophil function disorder [None]
  - Strabismus [None]
  - Tachycardia [None]
  - Tachypnoea [None]

NARRATIVE: CASE EVENT DATE: 20131204
